FAERS Safety Report 8950320 (Version 1)
Quarter: 2012Q4

REPORT INFORMATION
  Report Type: Spontaneous
  Country: US (occurrence: None)
  Receive Date: 20121130
  Receipt Date: 20121130
  Transmission Date: 20130627
  Serious: Yes (Other)
  Sender: FDA-Public Use
  Company Number: None

PATIENT
  Sex: Female
  Weight: 54.43 kg

DRUGS (2)
  1. TOOTHPASTE (SODIUM FLUORIDE 0.22% W/W TRICLOSAN 0.3% W/W TOOTHPASTE) [Suspect]
     Indication: ENAMEL ANOMALY
     Dosage: regular once daily po
     Route: 048
     Dates: start: 20080501, end: 20120301
  2. TOOTHPASTE (SODIUM FLUORIDE 0.22% W/W TRICLOSAN 0.3% W/W TOOTHPASTE) [Suspect]
     Indication: ENAMEL ANOMALY
     Dates: start: 20080501, end: 20120301

REACTIONS (2)
  - Ocular rosacea [None]
  - Rosacea [None]
